FAERS Safety Report 7176832-6 (Version None)
Quarter: 2010Q4

REPORT INFORMATION
  Report Type: 
  Country: None (occurrence: None)
  Receive Date: 20101220
  Receipt Date: 20101210
  Transmission Date: 20110411
  Serious: Yes (Other)
  Sender: FDA-Public Use
  Company Number: US-JNJFOC-20101205365

PATIENT
  Sex: Male
  Weight: 22.3 kg

DRUGS (2)
  1. CONCERTA [Suspect]
     Indication: ATTENTION DEFICIT/HYPERACTIVITY DISORDER
     Route: 048
  2. RITALIN [Suspect]
     Indication: ATTENTION DEFICIT/HYPERACTIVITY DISORDER
     Route: 048

REACTIONS (11)
  - ABNORMAL BEHAVIOUR [None]
  - AGGRESSION [None]
  - COGNITIVE DISORDER [None]
  - DISTURBANCE IN SOCIAL BEHAVIOUR [None]
  - DRUG DOSE OMISSION [None]
  - EYE SWELLING [None]
  - HEADACHE [None]
  - LETHARGY [None]
  - MOOD SWINGS [None]
  - PALLOR [None]
  - WITHDRAWAL SYNDROME [None]
